FAERS Safety Report 14789257 (Version 1)
Quarter: 2018Q2

REPORT INFORMATION
  Report Type: Spontaneous
  Country: US (occurrence: US)
  Receive Date: 20180423
  Receipt Date: 20180423
  Transmission Date: 20180711
  Serious: Yes (Death, Other)
  Sender: FDA-Public Use
  Company Number: PHHY2018US063943

PATIENT
  Age: 44 Year
  Sex: Female

DRUGS (1)
  1. FILGRASTIM [Suspect]
     Active Substance: FILGRASTIM
     Indication: ACUTE PROMYELOCYTIC LEUKAEMIA
     Dosage: 5 UG/KG, QD
     Route: 065

REACTIONS (14)
  - Hypoaesthesia [Fatal]
  - Loss of consciousness [Fatal]
  - Dysarthria [Fatal]
  - Intracranial mass [Fatal]
  - Promyelocyte count increased [Unknown]
  - Aphasia [Fatal]
  - Hemiparesis [Fatal]
  - Intracranial pressure increased [Fatal]
  - Unresponsive to stimuli [Fatal]
  - Brain oedema [Fatal]
  - Brain herniation [Fatal]
  - Leukocytosis [Unknown]
  - Cerebral haemorrhage [Fatal]
  - Haemorrhagic cerebral infarction [Fatal]
